FAERS Safety Report 5143172-6 (Version None)
Quarter: 2006Q4

REPORT INFORMATION
  Report Type: 
  Country: None (occurrence: None)
  Receive Date: 20061103
  Receipt Date: 20061026
  Transmission Date: 20070319
  Serious: Yes (Other)
  Sender: FDA-Public Use
  Company Number: US-AVENTIS-200621162GDDC

PATIENT
  Age: 73 Year
  Sex: Male
  Weight: 85.7 kg

DRUGS (3)
  1. TAXOTERE [Suspect]
     Indication: PROSTATE CANCER
     Route: 042
     Dates: start: 20031007, end: 20050527
  2. TAXOTERE [Suspect]
     Route: 042
     Dates: start: 20050923, end: 20060613
  3. DN-101 [Suspect]
     Indication: PROSTATE CANCER
     Route: 048
     Dates: start: 20031007, end: 20050526

REACTIONS (6)
  - ABDOMINAL DISCOMFORT [None]
  - ASCITES [None]
  - DYSPNOEA [None]
  - FATIGUE [None]
  - HEPATIC CIRRHOSIS [None]
  - HEPATIC STEATOSIS [None]
